FAERS Safety Report 7691589-8 (Version None)
Quarter: 2011Q3

REPORT INFORMATION
  Report Type: 
  Country: None (occurrence: None)
  Receive Date: 20110818
  Receipt Date: 20110809
  Transmission Date: 20111222
  Serious: Yes (Hospitalization, Other)
  Sender: FDA-Public Use
  Company Number: US-BAYER-2011-023322

PATIENT
  Age: 38 Year
  Sex: Female
  Weight: 86.168 kg

DRUGS (7)
  1. PERCOCET [Concomitant]
     Indication: PAIN
  2. DOXYCYCLINE [Concomitant]
     Indication: ACNE
     Route: 048
  3. ASACOL [Concomitant]
     Indication: COLITIS ULCERATIVE
     Route: 048
  4. CRYSELLE [Concomitant]
     Dosage: UNK
     Dates: start: 20090515
  5. YAZ [Suspect]
     Indication: MENSTRUAL CYCLE MANAGEMENT
     Dosage: UNK
     Dates: start: 20090301, end: 20090601
  6. NAPROXEN (ALEVE) [Concomitant]
     Indication: ARTHRALGIA
     Route: 048
  7. NEXIUM [Concomitant]
     Indication: GASTROINTESTINAL PAIN

REACTIONS (3)
  - PULMONARY EMBOLISM [None]
  - INJURY [None]
  - DEEP VEIN THROMBOSIS [None]
